FAERS Safety Report 6713771-6 (Version None)
Quarter: 2010Q2

REPORT INFORMATION
  Report Type: 
  Country: None (occurrence: None)
  Receive Date: 20100503
  Receipt Date: 20100422
  Transmission Date: 20101027
  Serious: Yes (Hospitalization)
  Sender: FDA-Public Use
  Company Number: WAES 0811ITA00023

PATIENT
  Age: 44 Year
  Sex: Male

DRUGS (10)
  1. TAB MK-0518 [Suspect]
     Indication: HIV INFECTION
     Dosage: 400 MG/BID PO
     Route: 048
     Dates: start: 20060906
  2. TENOFOVIR DISOPROXIL FUMARATE [Suspect]
     Indication: HIV INFECTION
     Dosage: 300 MG/DAILY PO
     Route: 048
     Dates: start: 20030626, end: 20080930
  3. TAB STAVUDINE [Suspect]
     Indication: HIV INFECTION
     Dosage: PO ; 40 MG/BID PO
     Route: 048
     Dates: start: 20000404, end: 20080815
  4. TAB STAVUDINE [Suspect]
     Indication: HIV INFECTION
     Dosage: PO ; 40 MG/BID PO
     Route: 048
     Dates: start: 20080816
  5. TAB DARUNAVIR [Suspect]
     Indication: HIV INFECTION
     Dosage: PO ; 600 MG/BID PO
     Route: 048
     Dates: start: 20060906, end: 20080815
  6. TAB DARUNAVIR [Suspect]
     Indication: HIV INFECTION
     Dosage: PO ; 600 MG/BID PO
     Route: 048
     Dates: start: 20080816
  7. RITONAVIR [Suspect]
     Indication: HIV INFECTION
     Dosage: PO ; 100 MG/BID PO
     Route: 048
     Dates: start: 20050921, end: 20080815
  8. RITONAVIR [Suspect]
     Indication: HIV INFECTION
     Dosage: PO ; 100 MG/BID PO
     Route: 048
     Dates: start: 20080816
  9. TAM EMTRITABINE (+) TENOFOVIR DISOPROXIL FUMA [Suspect]
     Indication: HIV INFECTION
     Dosage: PO ; PO
     Route: 048
     Dates: start: 20060405, end: 20060905
  10. TAM EMTRITABINE (+) TENOFOVIR DISOPROXIL FUMA [Suspect]
     Indication: HIV INFECTION
     Dosage: PO ; PO
     Route: 048
     Dates: start: 20060405

REACTIONS (1)
  - DIFFUSE LARGE B-CELL LYMPHOMA [None]
